FAERS Safety Report 23197432 (Version 7)
Quarter: 2024Q3

REPORT INFORMATION
  Report Type: Spontaneous
  Country: JP (occurrence: JP)
  Receive Date: 20231117
  Receipt Date: 20240730
  Transmission Date: 20241016
  Serious: Yes (Other)
  Sender: ARGENX BVBA
  Company Number: JP-ARGENX-2023-ARGX-JP003633

PATIENT

DRUGS (3)
  1. EFGARTIGIMOD ALFA [Suspect]
     Active Substance: EFGARTIGIMOD ALFA
     Indication: Myasthenia gravis
     Dosage: UNK
     Route: 042
     Dates: start: 202303
  2. EFGARTIGIMOD ALFA [Suspect]
     Active Substance: EFGARTIGIMOD ALFA
     Dosage: UNK
     Route: 042
     Dates: start: 20230922
  3. EFGARTIGIMOD ALFA [Suspect]
     Active Substance: EFGARTIGIMOD ALFA
     Dosage: UNK
     Route: 042
     Dates: start: 20240213, end: 20240220

REACTIONS (15)
  - Immunodeficiency [Unknown]
  - Myasthenia gravis [Unknown]
  - Muscular weakness [Unknown]
  - Skin discolouration [Unknown]
  - Photophobia [Unknown]
  - Eyelid ptosis [Unknown]
  - Myasthenia gravis [Unknown]
  - Fatigue [Unknown]
  - Influenza [Unknown]
  - Cough [Unknown]
  - Fatigue [Unknown]
  - Chest discomfort [Unknown]
  - Muscular weakness [Unknown]
  - Wrong technique in product usage process [Unknown]
  - Wrong device used [Unknown]

NARRATIVE: CASE EVENT DATE: 20231001
